FAERS Safety Report 6023295-X (Version None)
Quarter: 2008Q4

REPORT INFORMATION
  Report Type: 
  Country: None (occurrence: None)
  Receive Date: 20081223
  Receipt Date: 20081209
  Transmission Date: 20090506
  Serious: Yes (Other)
  Sender: FDA-Public Use
  Company Number: 1000003224

PATIENT
  Age: 40 Year
  Sex: Female

DRUGS (5)
  1. CITALOPRAM HYDROBROMIDE [Suspect]
     Dosage: (60 MG) ,ORAL
     Route: 048
     Dates: start: 20080915
  2. QUETIAPINE FUMARATE [Suspect]
     Dosage: ORAL
     Route: 048
  3. LAMOTRIGINE [Concomitant]
  4. BETNOVATE [Concomitant]
  5. OTHER TOPICAL PSORIASIS MEDICATION (NOS) [Concomitant]

REACTIONS (2)
  - BLOOD ALKALINE PHOSPHATASE INCREASED [None]
  - GAMMA-GLUTAMYLTRANSFERASE INCREASED [None]
